FAERS Safety Report 14245266 (Version 1)
Quarter: 2017Q4

REPORT INFORMATION
  Report Type: Spontaneous
  Country: US (occurrence: US)
  Receive Date: 20171202
  Receipt Date: 20171202
  Transmission Date: 20180321
  Serious: No
  Sender: FDA-Public Use
  Company Number: US-ENDO PHARMACEUTICALS INC-2017-000706

PATIENT
  Sex: Male

DRUGS (2)
  1. XIAFLEX [Suspect]
     Active Substance: COLLAGENASE CLOSTRIDIUM HISTOLYTICUM
     Indication: PEYRONIE^S DISEASE
     Dosage: UNK,1ST CYCLE, 1ST INJECTION
     Route: 026
     Dates: start: 20170103
  2. XIAFLEX [Suspect]
     Active Substance: COLLAGENASE CLOSTRIDIUM HISTOLYTICUM
     Dosage: UNK, 1ST CYCLE, 2ND INJECTION,
     Route: 026
     Dates: start: 20170207

REACTIONS (2)
  - Inappropriate schedule of drug administration [Recovered/Resolved]
  - Blood blister [Unknown]

NARRATIVE: CASE EVENT DATE: 2017
